FAERS Safety Report 16854560 (Version 1)
Quarter: 2019Q3

REPORT INFORMATION
  Report Type: Spontaneous
  Country: US (occurrence: US)
  Receive Date: 20190926
  Receipt Date: 20190926
  Transmission Date: 20191005
  Serious: No
  Sender: FDA-Public Use
  Company Number: US-ASTRAZENECA-2019SF25829

PATIENT
  Age: 55 Year
  Sex: Female

DRUGS (3)
  1. XIGDUO XR [Suspect]
     Active Substance: DAPAGLIFLOZIN PROPANEDIOL\METFORMIN HYDROCHLORIDE
     Indication: TYPE 2 DIABETES MELLITUS
     Dosage: 5/1000MG, 2 TABS EVERY MORNING
     Route: 048
  2. TRAJENTA [Concomitant]
     Active Substance: LINAGLIPTIN
  3. GLIMEPERIDE [Concomitant]
     Active Substance: GLIMEPIRIDE

REACTIONS (2)
  - Diabetes mellitus inadequate control [Unknown]
  - Genital infection fungal [Recovered/Resolved]
